FAERS Safety Report 20021160 (Version 3)
Quarter: 2021Q4

REPORT INFORMATION
  Report Type: Report from Study
  Country: KR (occurrence: KR)
  Receive Date: 20211101
  Receipt Date: 20211124
  Transmission Date: 20220303
  Serious: Yes (Hospitalization)
  Sender: FDA-Public Use
  Company Number: KR-TAKEDA-2021TUS066419

PATIENT
  Age: 75 Year
  Sex: Male
  Weight: 62 kg

DRUGS (11)
  1. IXAZOMIB [Suspect]
     Active Substance: IXAZOMIB
     Indication: Mantle cell lymphoma
     Dosage: 3 MILLIGRAM
     Route: 048
     Dates: start: 20210628, end: 20211118
  2. PREDNISOLONE [Concomitant]
     Active Substance: PREDNISOLONE
     Indication: Adrenal insufficiency
     Dosage: UNK UNK, QD
     Route: 048
     Dates: start: 20210827, end: 20211022
  3. DICAMAX [Concomitant]
     Indication: Osteoporosis
     Dosage: UNK, QD
     Route: 048
     Dates: start: 20210917
  4. ACYCLOVIR [Concomitant]
     Active Substance: ACYCLOVIR
     Indication: Prophylaxis
     Dosage: UNK, QD
     Route: 048
     Dates: start: 20210628
  5. PANTOPRAZOLE SODIUM [Concomitant]
     Active Substance: PANTOPRAZOLE SODIUM
     Indication: Prophylaxis against gastrointestinal ulcer
     Dosage: UNK, QD
     Route: 048
     Dates: start: 20201109
  6. Samnam loperamide [Concomitant]
     Indication: Prophylaxis against diarrhoea
     Dosage: UNK
     Route: 048
     Dates: start: 20210628
  7. ALMAGEL-F [Concomitant]
     Indication: Prophylaxis against gastrointestinal ulcer
     Dosage: UNK, TID
     Route: 048
     Dates: start: 20200929
  8. PAMIDRONATE DISODIUM [Concomitant]
     Active Substance: PAMIDRONATE DISODIUM
     Indication: Prophylaxis
     Dosage: 500 MILLILITER
     Route: 042
     Dates: start: 20210802
  9. MEDILAC DS [Concomitant]
     Indication: Prophylaxis
     Dosage: UNK, TID
     Route: 048
     Dates: start: 20201022, end: 20211103
  10. ULTRACET ER SEMI [Concomitant]
     Indication: Cancer pain
     Dosage: UNK
     Route: 048
     Dates: start: 20200317
  11. HARNAL [Concomitant]
     Active Substance: TAMSULOSIN HYDROCHLORIDE
     Indication: Benign prostatic hyperplasia
     Dosage: UNK, QD
     Route: 048
     Dates: start: 2015

REACTIONS (1)
  - Pneumonia [Recovered/Resolved with Sequelae]

NARRATIVE: CASE EVENT DATE: 20211016
